FAERS Safety Report 8600173-0 (Version None)
Quarter: 2012Q3

REPORT INFORMATION
  Report Type: 
  Country: None (occurrence: None)
  Receive Date: 20120817
  Receipt Date: 20120806
  Transmission Date: 20120928
  Serious: Yes (Other)
  Sender: FDA-Public Use
  Company Number: US-BIOGENIDEC-2012BI030462

PATIENT
  Age: 37 Year
  Sex: Female

DRUGS (1)
  1. TYSABRI [Suspect]
     Indication: MULTIPLE SCLEROSIS
     Route: 042
     Dates: start: 20111109

REACTIONS (11)
  - MULTIPLE SCLEROSIS RELAPSE [None]
  - URINARY TRACT INFECTION [None]
  - URTICARIA [None]
  - PYREXIA [None]
  - RASH [None]
  - UTERINE DILATION AND CURETTAGE [None]
  - VOMITING [None]
  - ANAEMIA [None]
  - EATING DISORDER [None]
  - IMPAIRED WORK ABILITY [None]
  - WEIGHT DECREASED [None]
